FAERS Safety Report 10919372 (Version 2)
Quarter: 2015Q4

REPORT INFORMATION
  Report Type: Spontaneous
  Country: DE (occurrence: DE)
  Receive Date: 20150316
  Receipt Date: 20151116
  Transmission Date: 20160304
  Serious: Yes (Hospitalization)
  Sender: FDA-Public Use
  Company Number: GXKR2015DE001506

PATIENT
  Sex: Female

DRUGS (2)
  1. QUETIAPIN HEXAL [Suspect]
     Active Substance: QUETIAPINE FUMARATE
     Indication: PSYCHOTIC DISORDER
     Route: 048
  2. QUETIAPIN HEXAL [Suspect]
     Active Substance: QUETIAPINE FUMARATE
     Dosage: 1 DF, QD
     Route: 048

REACTIONS (8)
  - Hypoaesthesia [Recovered/Resolved]
  - Hypertension [Not Recovered/Not Resolved]
  - Chest discomfort [Recovered/Resolved]
  - Product substitution issue [Unknown]
  - Tremor [Recovered/Resolved]
  - Palpitations [Not Recovered/Not Resolved]
  - Dizziness [Not Recovered/Not Resolved]
  - Tachycardia [Not Recovered/Not Resolved]
